FAERS Safety Report 23864131 (Version 1)
Quarter: 2024Q2

REPORT INFORMATION
  Report Type: Spontaneous
  Country: NL (occurrence: NL)
  Receive Date: 20240516
  Receipt Date: 20240516
  Transmission Date: 20240716
  Serious: Yes (Other)
  Sender: FDA-Public Use
  Company Number: NL-PFM-2024-02808

PATIENT

DRUGS (5)
  1. PROPRANOLOL [Suspect]
     Active Substance: PROPRANOLOL HYDROCHLORIDE
     Indication: Hyperthyroidism
     Dosage: UNK
     Route: 065
  2. PROPRANOLOL [Suspect]
     Active Substance: PROPRANOLOL HYDROCHLORIDE
     Indication: Off label use
  3. METHIMAZOLE [Suspect]
     Active Substance: METHIMAZOLE
     Indication: Hyperthyroidism
     Dosage: UNK
     Route: 065
  4. METHIMAZOLE [Suspect]
     Active Substance: METHIMAZOLE
     Dosage: 20 MG EVERY SIX HOURS
     Route: 054
  5. CARDIZEM [Suspect]
     Active Substance: DILTIAZEM HYDROCHLORIDE
     Indication: Hyperthyroidism
     Dosage: UNK
     Route: 065

REACTIONS (6)
  - Atrial fibrillation [Unknown]
  - Cardiac arrest [Unknown]
  - Duodenal ulcer perforation [Unknown]
  - Product use in unapproved indication [Unknown]
  - Product use issue [Unknown]
  - Off label use [Unknown]
